FAERS Safety Report 6679421-2 (Version None)
Quarter: 2010Q2

REPORT INFORMATION
  Report Type: 
  Country: None (occurrence: None)
  Receive Date: 20100413
  Receipt Date: 20100401
  Transmission Date: 20101027
  Serious: Yes (Other)
  Sender: FDA-Public Use
  Company Number: AT-ROCHE-696155

PATIENT
  Age: 40 Year
  Sex: Male

DRUGS (4)
  1. PEGINTERFERON ALFA-2A [Suspect]
     Route: 065
     Dates: start: 20020801, end: 20030201
  2. PEGINTERFERON ALFA-2A [Suspect]
     Route: 065
     Dates: start: 20051001, end: 20070101
  3. RIBAVIRIN [Suspect]
     Route: 065
     Dates: start: 20020801, end: 20030101
  4. RIBAVIRIN [Suspect]
     Route: 065
     Dates: start: 20051001, end: 20070101

REACTIONS (2)
  - CONVULSION [None]
  - HEPATIC CIRRHOSIS [None]
